FAERS Safety Report 4878309-7 (Version None)
Quarter: 2006Q1

REPORT INFORMATION
  Report Type: 
  Country: None (occurrence: None)
  Receive Date: 20060111
  Receipt Date: 20060103
  Transmission Date: 20060701
  Serious: Yes (Hospitalization, Other)
  Sender: FDA-Public Use
  Company Number: US-MERCK-0601USA00452

PATIENT
  Age: 52 Year
  Sex: Female
  Weight: 73 kg

DRUGS (3)
  1. VIOXX [Suspect]
     Route: 048
     Dates: start: 19990901, end: 20001001
  2. LIPITOR [Concomitant]
     Route: 065
  3. NORVASC [Concomitant]
     Route: 065

REACTIONS (4)
  - BACK INJURY [None]
  - CEREBROVASCULAR ACCIDENT [None]
  - JOINT INJURY [None]
  - MYOCARDIAL INFARCTION [None]
